FAERS Safety Report 13460609 (Version 1)
Quarter: 2017Q2

REPORT INFORMATION
  Report Type: Spontaneous
  Country: US (occurrence: US)
  Receive Date: 20170419
  Receipt Date: 20170419
  Transmission Date: 20170830
  Serious: Yes (Other)
  Sender: FDA-Public Use
  Company Number: None

PATIENT
  Age: 63 Year
  Sex: Female
  Weight: 64 kg

DRUGS (2)
  1. NEUTROGENA HEALTHY SKIN EYE CREAM [Suspect]
     Active Substance: COSMETICS
     Route: 061
     Dates: start: 20170301, end: 20170301
  2. NEUTROGENA HEALTHY SKIN ANTI-WRINKLE SYSTEM [Suspect]
     Active Substance: AVOBENZONE\OCTISALATE\OCTOCRYLENE\OXYBENZONE
     Indication: SKIN WRINKLING
     Dosage: QUARTER SIZE
     Route: 061
     Dates: start: 20170301, end: 20170301

REACTIONS (2)
  - Application site swelling [None]
  - Hypersensitivity [None]

NARRATIVE: CASE EVENT DATE: 20170302
